FAERS Safety Report 10374003 (Version 1)
Quarter: 2014Q3

REPORT INFORMATION
  Report Type: Spontaneous
  Country: US (occurrence: US)
  Receive Date: 20140810
  Receipt Date: 20140810
  Transmission Date: 20150326
  Serious: No
  Sender: FDA-Public Use
  Company Number: US-TEVA-495628USA

PATIENT
  Sex: Male

DRUGS (7)
  1. LITHIUM [Concomitant]
     Active Substance: LITHIUM CARBONATE
     Indication: BIPOLAR DISORDER
  2. ZYPREXA [Concomitant]
     Active Substance: OLANZAPINE
     Indication: BIPOLAR DISORDER
  3. VITAMIN D3 [Concomitant]
     Active Substance: CHOLECALCIFEROL
     Indication: SUPPLEMENTATION THERAPY
  4. DEPAKOTE [Concomitant]
     Active Substance: DIVALPROEX SODIUM
     Indication: BIPOLAR DISORDER
  5. RISPERIDONE. [Concomitant]
     Active Substance: RISPERIDONE
  6. LEVOXYL [Concomitant]
     Active Substance: LEVOTHYROXINE SODIUM
     Indication: HYPOTHYROIDISM
  7. GABITRIL [Suspect]
     Active Substance: TIAGABINE HYDROCHLORIDE
     Indication: BIPOLAR DISORDER
     Dates: start: 2003

REACTIONS (6)
  - Cognitive disorder [Unknown]
  - Insomnia [Unknown]
  - Activities of daily living impaired [Unknown]
  - Depression [Unknown]
  - Stress [Unknown]
  - Anxiety [Unknown]
